FAERS Safety Report 4393569-7 (Version None)
Quarter: 2004Q3

REPORT INFORMATION
  Report Type: 
  Country: None (occurrence: None)
  Receive Date: 20040701
  Receipt Date: 20040621
  Transmission Date: 20050211
  Serious: Yes (Hospitalization)
  Sender: FDA-Public Use
  Company Number: AT-JNJFOC-20040605068

PATIENT
  Sex: Female

DRUGS (2)
  1. DOXORUBICIN HCL [Suspect]
     Indication: BREAST CANCER METASTATIC
     Dosage: INTRAVENOUS
     Route: 042
  2. RADIATION THERAPY (OTHE DIAGNOSTIC AGENTS) [Suspect]
     Indication: BREAST CANCER METASTATIC

REACTIONS (1)
  - RADIATION PNEUMONITIS [None]
